FAERS Safety Report 14682589 (Version 1)
Quarter: 2018Q1

REPORT INFORMATION
  Report Type: Report from Study
  Country: None (occurrence: US)
  Receive Date: 20180327
  Receipt Date: 20180327
  Transmission Date: 20180509
  Serious: Yes (Other)
  Sender: FDA-Public Use
  Company Number: US-ABBVIE-18K-163-2300666-00

PATIENT
  Sex: Female

DRUGS (1)
  1. HUMIRA [Suspect]
     Active Substance: ADALIMUMAB
     Indication: RHEUMATOID ARTHRITIS
     Route: 058

REACTIONS (9)
  - Therapeutic response unexpected [Unknown]
  - Renal failure [Unknown]
  - Fibromyalgia [Not Recovered/Not Resolved]
  - Panic attack [Unknown]
  - Loss of personal independence in daily activities [Unknown]
  - Intentional product misuse [Not Recovered/Not Resolved]
  - Sarcoidosis [Recovering/Resolving]
  - Depression [Not Recovered/Not Resolved]
  - Drug ineffective [Not Recovered/Not Resolved]

NARRATIVE: CASE EVENT DATE: 2016
